FAERS Safety Report 24703132 (Version 1)
Quarter: 2024Q4

REPORT INFORMATION
  Report Type: Spontaneous
  Country: CN (occurrence: CN)
  Receive Date: 20241205
  Receipt Date: 20241205
  Transmission Date: 20250114
  Serious: Yes (Hospitalization)
  Sender: PFIZER
  Company Number: CN-PFIZER INC-PV202400155764

PATIENT
  Age: 46 Year
  Sex: Female
  Weight: 65 kg

DRUGS (1)
  1. CYTARABINE [Suspect]
     Active Substance: CYTARABINE
     Indication: Neoplasm
     Dosage: 5.2 G, 1X/DAY
     Route: 041
     Dates: start: 20241112, end: 20241113

REACTIONS (5)
  - Pyrexia [Recovered/Resolved]
  - Nausea [Recovering/Resolving]
  - Vomiting [Recovered/Resolved]
  - Constipation [Recovering/Resolving]
  - Faeces hard [Recovering/Resolving]

NARRATIVE: CASE EVENT DATE: 20241112
